FAERS Safety Report 18461976 (Version 1)
Quarter: 2020Q4

REPORT INFORMATION
  Report Type: Spontaneous
  Country: US (occurrence: US)
  Receive Date: 20201104
  Receipt Date: 20201104
  Transmission Date: 20210114
  Serious: No
  Sender: FDA-Public Use
  Company Number: US-ELI_LILLY_AND_COMPANY-US202010001619

PATIENT
  Age: 34 Year
  Sex: Female

DRUGS (1)
  1. EMGALITY [Suspect]
     Active Substance: GALCANEZUMAB-GNLM
     Indication: PRODUCT USED FOR UNKNOWN INDICATION
     Dosage: UNK, UNKNOWN
     Route: 065

REACTIONS (5)
  - Therapeutic response shortened [Unknown]
  - Migraine [Unknown]
  - Migraine [Unknown]
  - Product dose omission issue [Unknown]
  - Crying [Unknown]

NARRATIVE: CASE EVENT DATE: 202010
